FAERS Safety Report 18139313 (Version 1)
Quarter: 2020Q3

REPORT INFORMATION
  Report Type: Spontaneous
  Country: US (occurrence: US)
  Receive Date: 20200812
  Receipt Date: 20200812
  Transmission Date: 20201103
  Serious: No
  Sender: FDA-Public Use
  Company Number: None

PATIENT
  Age: 80 Year
  Sex: Female
  Weight: 37.79 kg

DRUGS (2)
  1. XGEVA [Concomitant]
     Active Substance: DENOSUMAB
     Dates: start: 20200811, end: 20200811
  2. FASLODEX [Suspect]
     Active Substance: FULVESTRANT
     Indication: BREAST CANCER
     Dosage: ?          OTHER FREQUENCY:Q28D;?
     Route: 030
     Dates: start: 20200811, end: 20200811

REACTIONS (4)
  - Taste disorder [None]
  - Lethargy [None]
  - Asthenia [None]
  - Paraesthesia [None]

NARRATIVE: CASE EVENT DATE: 20200811
